FAERS Safety Report 22088898 (Version 1)
Quarter: 2023Q1

REPORT INFORMATION
  Report Type: Spontaneous
  Country: US (occurrence: US)
  Receive Date: 20230313
  Receipt Date: 20230313
  Transmission Date: 20230417
  Serious: No
  Sender: FDA-Public Use
  Company Number: US-TORRENT-00012548

PATIENT
  Sex: Female

DRUGS (2)
  1. CARBAMAZEPINE [Suspect]
     Active Substance: CARBAMAZEPINE
     Indication: Epilepsy
     Dosage: 200 MG 2 TIMES A DAY IN THE MORNING AND IN EVENING
     Route: 065
  2. LEVETIRACETAM [Suspect]
     Active Substance: LEVETIRACETAM
     Indication: Epilepsy
     Dosage: 2 DOSES A DAY
     Route: 065

REACTIONS (5)
  - Feeling drunk [Unknown]
  - Somnolence [Unknown]
  - Fall [Unknown]
  - Visual impairment [Unknown]
  - Euphoric mood [Unknown]
